FAERS Safety Report 9253668 (Version 1)
Quarter: 2013Q2

REPORT INFORMATION
  Report Type: Spontaneous
  Country: DE (occurrence: DE)
  Receive Date: 20130425
  Receipt Date: 20130425
  Transmission Date: 20140414
  Serious: Yes (Other)
  Sender: FDA-Public Use
  Company Number: DE-ROCHE-1218027

PATIENT
  Sex: 0

DRUGS (2)
  1. LUCENTIS [Suspect]
     Indication: DETACHMENT OF RETINAL PIGMENT EPITHELIUM
     Route: 050
  2. LUCENTIS [Suspect]
     Indication: OFF LABEL USE

REACTIONS (2)
  - Visual acuity reduced [Not Recovered/Not Resolved]
  - Disease progression [Not Recovered/Not Resolved]
